FAERS Safety Report 4873537-9 (Version None)
Quarter: 2005Q4

REPORT INFORMATION
  Report Type: 
  Country: None (occurrence: None)
  Receive Date: 20051201
  Receipt Date: 20050822
  Transmission Date: 20060501
  Serious: No
  Sender: FDA-Public Use
  Company Number: 2005PV001452

PATIENT
  Age: 69 Year
  Sex: Male
  Weight: 102.5129 kg

DRUGS (9)
  1. BYETTA [Suspect]
     Indication: DIABETES MELLITUS NON-INSULIN-DEPENDENT
     Dosage: 5 MCG; BID; SC
     Route: 058
     Dates: start: 20050815
  2. GLUCOTROL [Concomitant]
  3. ZOCOR [Concomitant]
  4. ACCUPRIL [Concomitant]
  5. HYTRIN [Concomitant]
  6. TAMBOCOR [Concomitant]
  7. HYDROCHLOROTHIAZIDE [Concomitant]
  8. TIAZAC [Concomitant]
  9. AVODART [Concomitant]

REACTIONS (2)
  - BALANCE DISORDER [None]
  - DIZZINESS [None]
